FAERS Safety Report 12693250 (Version 1)
Quarter: 2016Q3

REPORT INFORMATION
  Report Type: Spontaneous
  Country: US (occurrence: US)
  Receive Date: 20160829
  Receipt Date: 20160829
  Transmission Date: 20161109
  Serious: Yes (Other)
  Sender: FDA-Public Use
  Company Number: US-SA-2016SA008536

PATIENT
  Age: 58 Year
  Sex: Female

DRUGS (5)
  1. BUTRANS [Concomitant]
     Active Substance: BUPRENORPHINE
  2. ORTHOVISC [Concomitant]
     Active Substance: HYALURONIC ACID
  3. AUBAGIO [Suspect]
     Active Substance: TERIFLUNOMIDE
     Indication: MULTIPLE SCLEROSIS
     Route: 048
     Dates: start: 20160108
  4. MIRALAX [Concomitant]
     Active Substance: POLYETHYLENE GLYCOL 3350
  5. DILAUDID [Suspect]
     Active Substance: HYDROMORPHONE HYDROCHLORIDE
     Route: 065

REACTIONS (9)
  - Lip swelling [Unknown]
  - Spinal fracture [Unknown]
  - Optic neuritis [Unknown]
  - Constipation [Unknown]
  - Pain [Unknown]
  - Balance disorder [Unknown]
  - Dry skin [Unknown]
  - Mood altered [Unknown]
  - Pruritus [Unknown]

NARRATIVE: CASE EVENT DATE: 2016
